FAERS Safety Report 8230645-2 (Version None)
Quarter: 2012Q1

REPORT INFORMATION
  Report Type: 
  Country: None (occurrence: None)
  Receive Date: 20120323
  Receipt Date: 20120320
  Transmission Date: 20120608
  Serious: Yes (Other)
  Sender: FDA-Public Use
  Company Number: PL-ASTELLAS-2012EU002119

PATIENT
  Age: 75 Year
  Sex: Male

DRUGS (2)
  1. VESICARE [Suspect]
     Indication: MICTURITION URGENCY
  2. VESICARE [Suspect]
     Indication: HYPERTONIC BLADDER
     Dosage: UNK
     Route: 065

REACTIONS (1)
  - DEMENTIA [None]
